FAERS Safety Report 25142982 (Version 1)
Quarter: 2025Q2

REPORT INFORMATION
  Report Type: Spontaneous
  Country: US (occurrence: US)
  Receive Date: 20250401
  Receipt Date: 20250401
  Transmission Date: 20250717
  Serious: Yes (Death, Life-Threatening, Hospitalization, Other)
  Sender: CIPLA
  Company Number: US-MLMSERVICE-20250317-PI445898-00050-1

PATIENT

DRUGS (1)
  1. AMLODIPINE [Suspect]
     Active Substance: AMLODIPINE BESYLATE
     Route: 048

REACTIONS (9)
  - Cardiac arrest [Fatal]
  - Overdose [Fatal]
  - Pulmonary oedema [Unknown]
  - Vasoplegia syndrome [Unknown]
  - Hypoxia [Recovering/Resolving]
  - Renal failure [Unknown]
  - Multiple organ dysfunction syndrome [Unknown]
  - Cardiac failure high output [Unknown]
  - Somnolence [Unknown]
